FAERS Safety Report 4828971-X (Version None)
Quarter: 2005Q4

REPORT INFORMATION
  Report Type: 
  Country: None (occurrence: None)
  Receive Date: 20051027
  Receipt Date: 20050104
  Transmission Date: 20060501
  Serious: Yes (Other)
  Sender: FDA-Public Use
  Company Number: HQWYE215017JUL04

PATIENT
  Age: 49 Year
  Sex: Female
  Weight: 79 kg

DRUGS (2)
  1. PREMARIN [Suspect]
     Indication: HOT FLUSH
     Route: 048
     Dates: start: 19870417, end: 19971120
  2. PREMARIN [Suspect]
     Indication: VULVOVAGINAL DRYNESS
     Route: 048
     Dates: start: 19870417, end: 19971120

REACTIONS (1)
  - BREAST CANCER [None]
